FAERS Safety Report 16497950 (Version 1)
Quarter: 2019Q2

REPORT INFORMATION
  Report Type: Report from Study
  Country: US (occurrence: US)
  Receive Date: 20190628
  Receipt Date: 20190628
  Transmission Date: 20190711
  Serious: Yes (Hospitalization, Other)
  Sender: FDA-Public Use
  Company Number: US-ALEXION-A201909498

PATIENT
  Sex: Male

DRUGS (1)
  1. SOLIRIS [Suspect]
     Active Substance: ECULIZUMAB
     Indication: MYASTHENIA GRAVIS
     Route: 065

REACTIONS (6)
  - Dehydration [Unknown]
  - Asthenia [Not Recovered/Not Resolved]
  - Tooth fracture [Unknown]
  - Tooth abscess [Unknown]
  - Joint swelling [Unknown]
  - Temporomandibular joint syndrome [Unknown]
